FAERS Safety Report 4481956-8 (Version None)
Quarter: 2004Q4

REPORT INFORMATION
  Report Type: 
  Country: None (occurrence: None)
  Receive Date: 20041020
  Receipt Date: 20041001
  Transmission Date: 20050328
  Serious: Yes (Hospitalization)
  Sender: FDA-Public Use
  Company Number: JP_040804249

PATIENT
  Age: 57 Year
  Sex: Female
  Weight: 40 kg

DRUGS (9)
  1. GEMZAR [Suspect]
     Indication: NON-SMALL CELL LUNG CANCER
     Dosage: 1100 MG OTHER
     Dates: start: 20040521, end: 20040616
  2. VINORELBINE TARTRATE [Concomitant]
  3. RADIATION THERAPY [Concomitant]
  4. GASTER (FAMOTIDNE) [Concomitant]
  5. PROMAC [Concomitant]
  6. ZOLPIDEM TARTRATE [Concomitant]
  7. LOXONIN (LOXOPROFEN SODIUM) [Concomitant]
  8. ULGUT (BENEXATE HYDROCHLORIDE) [Concomitant]
  9. LEVOTHYROXINE SODIUM [Concomitant]

REACTIONS (4)
  - COMPUTERISED TOMOGRAM ABNORMAL [None]
  - INFECTION [None]
  - INTERSTITIAL LUNG DISEASE [None]
  - WHITE BLOOD CELL COUNT DECREASED [None]
